FAERS Safety Report 8816301 (Version 1)
Quarter: 2012Q4

REPORT INFORMATION
  Report Type: Spontaneous
  Country: US (occurrence: None)
  Receive Date: 20120928
  Receipt Date: 20120928
  Transmission Date: 20130627
  Serious: No
  Sender: FDA-Public Use
  Company Number: None

PATIENT
  Age: 91 Year
  Sex: Male
  Weight: 71 kg

DRUGS (1)
  1. DABIGATRAN [Suspect]
     Indication: RASH
     Route: 048
     Dates: start: 20110620, end: 20110708

REACTIONS (1)
  - Rash [None]
